FAERS Safety Report 5911703-1 (Version None)
Quarter: 2008Q4

REPORT INFORMATION
  Report Type: 
  Country: None (occurrence: None)
  Receive Date: 20081003
  Receipt Date: 20080911
  Transmission Date: 20090506
  Serious: Yes (Other)
  Sender: FDA-Public Use
  Company Number: CIP08001929

PATIENT
  Age: 55 Year
  Sex: Male

DRUGS (1)
  1. DANTRIUM [Suspect]
     Indication: NEUROLEPTIC MALIGNANT SYNDROME
     Dosage: 75 MG, DAILY, IV DRIP
     Route: 041

REACTIONS (10)
  - DRUG INEFFECTIVE [None]
  - FACIAL SPASM [None]
  - GRAND MAL CONVULSION [None]
  - HYPERTHERMIA [None]
  - INFLAMMATION [None]
  - INSOMNIA [None]
  - OXYGEN SATURATION DECREASED [None]
  - RESPIRATORY DISORDER [None]
  - STATUS EPILEPTICUS [None]
  - VOMITING [None]
